FAERS Safety Report 8458242-4 (Version None)
Quarter: 2012Q2

REPORT INFORMATION
  Report Type: 
  Country: None (occurrence: None)
  Receive Date: 20120323
  Receipt Date: 20111209
  Transmission Date: 20120825
  Serious: Yes (Hospitalization)
  Sender: FDA-Public Use
  Company Number: 163-21880-11102670

PATIENT
  Age: 75 Year
  Sex: Female
  Weight: 58.9676 kg

DRUGS (11)
  1. ASPIRIN [Concomitant]
  2. CALCIUM CARBONATE [Concomitant]
  3. PROTONIX [Concomitant]
  4. VITAMIN D [Concomitant]
  5. ACYCLOVIR [Concomitant]
  6. NORVASC [Concomitant]
  7. POTASSIUM CHLORIDE [Concomitant]
  8. HYDROCHLOROTHIAZIDE [Concomitant]
  9. DEXAMETHASONE [Concomitant]
  10. REVLIMID [Suspect]
     Indication: MULTIPLE MYELOMA
     Dosage: 10 MG, DIALY X 21 DAYS, PO
     Route: 048
     Dates: start: 20111001
  11. REVLIMID [Suspect]
     Indication: MULTIPLE MYELOMA
     Dosage: 10 MG, DIALY X 21 DAYS, PO
     Route: 048
     Dates: start: 20090202, end: 20111016

REACTIONS (1)
  - KIDNEY INFECTION [None]
